FAERS Safety Report 4868458-1 (Version None)
Quarter: 2005Q4

REPORT INFORMATION
  Report Type: 
  Country: None (occurrence: None)
  Receive Date: 20051227
  Receipt Date: 20051213
  Transmission Date: 20060501
  Serious: Yes (Death, Hospitalization)
  Sender: FDA-Public Use
  Company Number: 8013900

PATIENT
  Age: 37 Year
  Sex: Male

DRUGS (1)
  1. ACETAMINOPHEN AND HYDROCODONE BITARTRATE [Suspect]
     Dosage: NAS
     Route: 045

REACTIONS (8)
  - CHEMICAL INJURY [None]
  - INCORRECT ROUTE OF DRUG ADMINISTRATION [None]
  - INTENTIONAL DRUG MISUSE [None]
  - LUNG INFECTION PSEUDOMONAL [None]
  - MYCOBACTERIUM AVIUM COMPLEX INFECTION [None]
  - REACTION TO DRUG EXCIPIENTS [None]
  - SEPSIS [None]
  - WEIGHT DECREASED [None]
